FAERS Safety Report 6456563-8 (Version None)
Quarter: 2009Q4

REPORT INFORMATION
  Report Type: 
  Country: None (occurrence: None)
  Receive Date: 20091119
  Receipt Date: 20091105
  Transmission Date: 20100525
  Serious: Yes (Death, Hospitalization)
  Sender: FDA-Public Use
  Company Number: CERZ-1001011

PATIENT
  Age: 2 Year
  Sex: Male
  Weight: 14 kg

DRUGS (1)
  1. CEREZYME [Suspect]
     Indication: GAUCHER'S DISEASE
     Dosage: 60 U/KG, INTRAVENOUS
     Route: 042
     Dates: start: 20091022, end: 20091027

REACTIONS (7)
  - ACIDOSIS [None]
  - ASTHMA [None]
  - BRONCHOSPASM [None]
  - CARDIAC ARREST [None]
  - HAEMORRHAGE [None]
  - SEPSIS [None]
  - THROMBOCYTOPENIA [None]
